FAERS Safety Report 9871813 (Version 3)
Quarter: 2014Q1

REPORT INFORMATION
  Report Type: Report from Study
  Country: JP (occurrence: JP)
  Receive Date: 20140205
  Receipt Date: 20140318
  Transmission Date: 20141002
  Serious: Yes (Hospitalization, Other)
  Sender: FDA-Public Use
  Company Number: JP-TAKEDA-2013TJP003892

PATIENT
  Age: 76 Year
  Sex: Female

DRUGS (6)
  1. LANSOPRAZOLE [Suspect]
     Indication: PROPHYLAXIS AGAINST GASTROINTESTINAL ULCER
     Dosage: 15 MG, QD
     Route: 048
     Dates: start: 20121114, end: 20130130
  2. ADOFEED PAP [Suspect]
     Indication: SPINAL COMPRESSION FRACTURE
     Dosage: 160 MG, 1 DAYS
     Route: 062
     Dates: start: 20121107, end: 20121212
  3. LOXOPROFEN /00890702/ [Concomitant]
     Indication: SPINAL COMPRESSION FRACTURE
     Dosage: 180 MG, 1 DAYS
     Route: 048
     Dates: start: 20121107, end: 20130130
  4. VOLTAREN                           /00372302/ [Concomitant]
     Indication: SPINAL COMPRESSION FRACTURE
     Dosage: 25 MG, 1 DAYS
     Route: 054
     Dates: start: 20121107, end: 20121226
  5. REBAMIPIDE [Concomitant]
     Dosage: 300 MG, 1 DAYS
     Route: 048
     Dates: start: 20121107
  6. ELCITONIN INJ. 20S DISPO [Concomitant]
     Indication: SPINAL COMPRESSION FRACTURE
     Dosage: 20 IU, 1/WEEK
     Route: 050
     Dates: start: 20121114

REACTIONS (3)
  - Colon cancer [Recovered/Resolved]
  - Dermatitis contact [Recovered/Resolved]
  - Anaemia [Recovered/Resolved]
